FAERS Safety Report 4447765-0 (Version None)
Quarter: 2004Q3

REPORT INFORMATION
  Report Type: 
  Country: None (occurrence: None)
  Receive Date: 20040913
  Receipt Date: 20040901
  Transmission Date: 20050211
  Serious: Yes (Hospitalization)
  Sender: FDA-Public Use
  Company Number: 200413284FR

PATIENT
  Age: 60 Year
  Sex: Female

DRUGS (7)
  1. LOVENOX [Suspect]
     Indication: THROMBOSIS PROPHYLAXIS
     Route: 058
     Dates: start: 20040828
  2. PREVISCAN [Concomitant]
     Route: 048
     Dates: end: 20040827
  3. CELECTOL [Concomitant]
     Indication: HYPERTENSION
     Dosage: DOSE UNIT: UNITS
     Route: 048
  4. COVERSYL [Concomitant]
     Indication: HYPERTENSION
     Route: 048
  5. FLUDEX [Concomitant]
     Dosage: DOSE UNIT: UNITS
     Route: 048
  6. DI-ANTALVIC [Concomitant]
     Dosage: FREQUENCY: IRREGULAR
     Route: 048
  7. PARACETAMOL [Concomitant]
     Dosage: FREQUENCY: IRREGULAR
     Route: 048

REACTIONS (2)
  - DYSARTHRIA [None]
  - TRANSIENT ISCHAEMIC ATTACK [None]
